FAERS Safety Report 5960983-5 (Version None)
Quarter: 2008Q4

REPORT INFORMATION
  Report Type: 
  Country: None (occurrence: None)
  Receive Date: 20081121
  Receipt Date: 20081112
  Transmission Date: 20090506
  Serious: Yes (Hospitalization)
  Sender: FDA-Public Use
  Company Number: KR-BRISTOL-MYERS SQUIBB COMPANY-14412548

PATIENT
  Age: 70 Year
  Sex: Male

DRUGS (4)
  1. CETUXIMAB [Suspect]
     Indication: HEAD AND NECK CANCER
     Dosage: DOSE REDUCED ON 08JUL2008 TO 250MG/M2, 1 IN 1 WEEK, LAST DOSE PRIOR TO EVENT ADMIN. ON 08-OCT-2008
     Route: 042
     Dates: start: 20080701
  2. CISPLATIN [Suspect]
     Indication: HEAD AND NECK CANCER
     Dosage: STARTING DOSE UNTIL 20AUG08, REDUCED 18SEP08 TO 30 MG/M2 1/1WEEK, DOSE BEFORE EVENT: 08-OCT-2008
     Route: 042
     Dates: start: 20080701
  3. DOCETAXEL [Suspect]
     Indication: HEAD AND NECK CANCER
     Route: 042
     Dates: start: 20080701, end: 20080820
  4. RADIATION THERAPY [Suspect]
     Indication: HEAD AND NECK CANCER

REACTIONS (3)
  - FEBRILE NEUTROPENIA [None]
  - OROPHARYNGEAL CANDIDIASIS [None]
  - STOMATITIS [None]
